FAERS Safety Report 9012261 (Version 2)
Quarter: 2013Q1

REPORT INFORMATION
  Report Type: Spontaneous
  Country: AU (occurrence: AU)
  Receive Date: 20130114
  Receipt Date: 20130315
  Transmission Date: 20140127
  Serious: Yes (Other)
  Sender: FDA-Public Use
  Company Number: PHHY2013AU001954

PATIENT
  Age: 39 Year
  Sex: Female

DRUGS (2)
  1. CLOZAPINE [Suspect]
     Indication: SCHIZOPHRENIA
     Dosage: 200 MG, DAILY
  2. LORAZEPAM [Suspect]
     Dosage: 2 MG

REACTIONS (14)
  - Catatonia [Unknown]
  - Psychotic disorder [Unknown]
  - Persecutory delusion [Unknown]
  - Delusion of grandeur [Unknown]
  - Abnormal behaviour [Unknown]
  - Hallucination, auditory [Unknown]
  - Agitation [Unknown]
  - Mutism [Unknown]
  - Posturing [Unknown]
  - Staring [Unknown]
  - Negativism [Unknown]
  - Echolalia [Unknown]
  - Drug withdrawal syndrome [Unknown]
  - Mental impairment [Unknown]
